FAERS Safety Report 16093540 (Version 1)
Quarter: 2019Q1

REPORT INFORMATION
  Report Type: Report from Study
  Country: US (occurrence: US)
  Receive Date: 20190320
  Receipt Date: 20190320
  Transmission Date: 20190418
  Serious: Yes (Hospitalization, Other)
  Sender: FDA-Public Use
  Company Number: US-TESARO-2019-TSO00107-US

PATIENT
  Sex: Female

DRUGS (1)
  1. ZEJULA [Suspect]
     Active Substance: NIRAPARIB
     Indication: OVARIAN CANCER
     Dosage: 300 MG, ONCE DAILY
     Route: 048
     Dates: start: 20181213

REACTIONS (5)
  - Nausea [Not Recovered/Not Resolved]
  - Transfusion [Unknown]
  - Visual impairment [Unknown]
  - Cough [Unknown]
  - Fatigue [Unknown]
